FAERS Safety Report 16784707 (Version 1)
Quarter: 2019Q3

REPORT INFORMATION
  Report Type: Spontaneous
  Country: US (occurrence: US)
  Receive Date: 20190717
  Receipt Date: 20190717
  Transmission Date: 20191005
  Serious: Yes (Hospitalization)
  Sender: FDA-Public Use
  Company Number: None

PATIENT
  Age: 79 Year
  Sex: Male
  Weight: 118 kg

DRUGS (1)
  1. WARFARIN [Suspect]
     Active Substance: WARFARIN
     Indication: ATRIAL FIBRILLATION
     Dosage: ?          OTHER FREQUENCY:DAILY TAKE NONE ON SUND MG?
     Route: 048
     Dates: start: 20171224, end: 20190228

REACTIONS (3)
  - Gastric haemorrhage [None]
  - Duodenal ulcer [None]
  - International normalised ratio increased [None]

NARRATIVE: CASE EVENT DATE: 20190223
